FAERS Safety Report 10906900 (Version 1)
Quarter: 2015Q1

REPORT INFORMATION
  Report Type: Spontaneous
  Country: US (occurrence: None)
  Receive Date: 20150309
  Receipt Date: 20150309
  Transmission Date: 20150721
  Serious: No
  Sender: FDA-Public Use
  Company Number: None

PATIENT
  Age: 51 Year
  Sex: Female
  Weight: 136.08 kg

DRUGS (1)
  1. TYGACIL [Suspect]
     Active Substance: TIGECYCLINE
     Indication: CELLULITIS
     Route: 042
     Dates: start: 20150301, end: 20150303

REACTIONS (1)
  - Swelling face [None]

NARRATIVE: CASE EVENT DATE: 20150303
